FAERS Safety Report 24293067 (Version 1)
Quarter: 2024Q3

REPORT INFORMATION
  Report Type: Spontaneous
  Country: US (occurrence: None)
  Receive Date: 20240906
  Receipt Date: 20240906
  Transmission Date: 20241016
  Serious: No
  Sender: DOMPE FARMACEUTICI
  Company Number: US-FARMAPROD-202308-202311-3454

PATIENT
  Age: 42 Year
  Sex: Female

DRUGS (6)
  1. OXERVATE [Suspect]
     Active Substance: CENEGERMIN-BKBJ
     Indication: Neurotrophic keratopathy
     Route: 047
     Dates: start: 20231113
  2. MIEBO [Concomitant]
     Active Substance: PERFLUOROHEXYLOCTANE
  3. FLUOROMETHOLONE [Concomitant]
     Active Substance: FLUOROMETHOLONE
  4. PATADAY ONCE DAILY RELIEF [Concomitant]
     Active Substance: OLOPATADINE HYDROCHLORIDE
  5. LEVOTHYROXINE SODIUM [Concomitant]
     Active Substance: LEVOTHYROXINE SODIUM
  6. SYSTANE COMPLETE [Concomitant]
     Active Substance: PROPYLENE GLYCOL

REACTIONS (2)
  - Exposure during pregnancy [Unknown]
  - Eye pain [Not Recovered/Not Resolved]

NARRATIVE: CASE EVENT DATE: 20231116
